FAERS Safety Report 7796129-0 (Version None)
Quarter: 2011Q4

REPORT INFORMATION
  Report Type: 
  Country: None (occurrence: None)
  Receive Date: 20111004
  Receipt Date: 20110926
  Transmission Date: 20120403
  Serious: Yes (Death, Life-Threatening, Other)
  Sender: FDA-Public Use
  Company Number: US-CELGENEUS-163-21880-10102518

PATIENT
  Age: 68 Year
  Sex: Female
  Weight: 66.4 kg

DRUGS (3)
  1. REVLIMID [Suspect]
     Indication: NASOPHARYNGEAL CANCER
     Dosage: 25 MILLIGRAM
     Route: 048
     Dates: start: 20101008, end: 20100101
  2. CETUXIMAB [Suspect]
     Indication: NASOPHARYNGEAL CANCER
     Dosage: 500 MILLIGRAM/SQ. METER
     Route: 041
     Dates: start: 20101008, end: 20100101
  3. LEVOPHED [Concomitant]
     Route: 041
     Dates: start: 20101001

REACTIONS (6)
  - RESPIRATORY DISTRESS [None]
  - UNRESPONSIVE TO STIMULI [None]
  - RENAL FAILURE ACUTE [None]
  - BLOOD PRESSURE SYSTOLIC DECREASED [None]
  - NASOPHARYNGEAL CANCER [None]
  - PNEUMONIA [None]
